FAERS Safety Report 5679371-4 (Version None)
Quarter: 2008Q1

REPORT INFORMATION
  Report Type: 
  Country: None (occurrence: None)
  Receive Date: 20080325
  Receipt Date: 20080317
  Transmission Date: 20080703
  Serious: Yes (Hospitalization)
  Sender: FDA-Public Use
  Company Number: US-ELI_LILLY_AND_COMPANY-US200803003692

PATIENT
  Age: 70 Year
  Sex: Female

DRUGS (3)
  1. BYETTA [Suspect]
     Dosage: 5 UG, 2/D
     Route: 058
  2. GLIPIZIDE [Concomitant]
     Indication: DIABETES MELLITUS
  3. ACTOS [Concomitant]
     Indication: DIABETES MELLITUS

REACTIONS (2)
  - FALL [None]
  - HOSPITALISATION [None]
